FAERS Safety Report 18923412 (Version 1)
Quarter: 2021Q1

REPORT INFORMATION
  Report Type: Spontaneous
  Country: HU (occurrence: HU)
  Receive Date: 20210222
  Receipt Date: 20210222
  Transmission Date: 20210420
  Serious: Yes (Other)
  Sender: FDA-Public Use
  Company Number: HU-IPSEN BIOPHARMACEUTICALS, INC.-2021-04189

PATIENT
  Age: 34 Year
  Sex: Female

DRUGS (5)
  1. SOMATULINE AUTOGEL [Suspect]
     Active Substance: LANREOTIDE ACETATE
     Indication: PANCREATIC NEUROENDOCRINE TUMOUR METASTATIC
     Route: 058
     Dates: start: 2014
  2. SOMATULINE AUTOGEL [Suspect]
     Active Substance: LANREOTIDE ACETATE
     Route: 065
     Dates: start: 201711
  3. RIVAROXABAN [Concomitant]
     Active Substance: RIVAROXABAN
  4. SOMATULINE AUTOGEL [Suspect]
     Active Substance: LANREOTIDE ACETATE
     Route: 065
  5. LMWH (LOW MOLECULAR WEIGHT HEPARIN) [Concomitant]

REACTIONS (4)
  - Pancreatic carcinoma recurrent [Recovered/Resolved]
  - Exposure during pregnancy [Unknown]
  - Cholelithiasis [Not Recovered/Not Resolved]
  - Metastasis [Recovered/Resolved]

NARRATIVE: CASE EVENT DATE: 2017
